FAERS Safety Report 4486945-5 (Version None)
Quarter: 2004Q3

REPORT INFORMATION
  Report Type: 
  Country: None (occurrence: None)
  Receive Date: 20040921
  Receipt Date: 20031021
  Transmission Date: 20050211
  Serious: Yes (Hospitalization)
  Sender: FDA-Public Use
  Company Number: 163-20785-03100604(0)

PATIENT
  Age: 62 Year
  Sex: Female
  Weight: 107 kg

DRUGS (15)
  1. THALOMID [Suspect]
     Indication: RENAL CANCER METASTATIC
     Dosage: 100 MG, Q.H.S., ORAL
     Route: 048
     Dates: start: 20030929, end: 20031020
  2. INTERLEUKIN 2 (INTERLEUKIN-2) [Suspect]
     Indication: RENAL CANCER METASTATIC
  3. K-DUR 10 [Concomitant]
  4. SYNTHROID [Concomitant]
  5. TOPROL-XL [Concomitant]
  6. DIOVAN HCT (CO-DIOVAN) [Concomitant]
  7. DEMADEX [Concomitant]
  8. ZOCOR [Concomitant]
  9. PEPCID [Concomitant]
  10. DILAUDID [Concomitant]
  11. TYLENOL [Concomitant]
  12. KYTRIL [Concomitant]
  13. PHENERGAN [Concomitant]
  14. REGLAN [Concomitant]
  15. PREMARIN [Concomitant]

REACTIONS (23)
  - ARTHRALGIA [None]
  - BLOOD CREATININE INCREASED [None]
  - CHEST PAIN [None]
  - CHILLS [None]
  - COUGH [None]
  - DEEP VEIN THROMBOSIS [None]
  - DEHYDRATION [None]
  - DYSPNOEA [None]
  - FIBRIN D DIMER [None]
  - FIBRIN D DIMER INCREASED [None]
  - HEADACHE [None]
  - HYPOTENSION [None]
  - HYPOXIA [None]
  - NAUSEA [None]
  - PAIN IN EXTREMITY [None]
  - PCO2 ABNORMAL [None]
  - PULMONARY EMBOLISM [None]
  - PYREXIA [None]
  - RALES [None]
  - RHINORRHOEA [None]
  - TROPONIN INCREASED [None]
  - VOMITING [None]
  - WHITE BLOOD CELL COUNT INCREASED [None]
